FAERS Safety Report 9436627 (Version 1)
Quarter: 2013Q3

REPORT INFORMATION
  Report Type: Spontaneous
  Country: US (occurrence: None)
  Receive Date: 20130801
  Receipt Date: 20130801
  Transmission Date: 20140515
  Serious: Yes (Hospitalization)
  Sender: FDA-Public Use
  Company Number: None

PATIENT
  Age: 55 Year
  Sex: Male
  Weight: 56.7 kg

DRUGS (1)
  1. AVONEX 30MCG BIOGEN [Suspect]
     Indication: MULTIPLE SCLEROSIS
     Dosage: 30MCG WEEKLY IM
     Route: 030
     Dates: start: 1999

REACTIONS (5)
  - Pneumonia [None]
  - Local swelling [None]
  - Decreased appetite [None]
  - Fatigue [None]
  - Weight decreased [None]
